FAERS Safety Report 7920279-9 (Version None)
Quarter: 2011Q4

REPORT INFORMATION
  Report Type: 
  Country: None (occurrence: None)
  Receive Date: 20111117
  Receipt Date: 20111110
  Transmission Date: 20120403
  Serious: Yes (Death)
  Sender: FDA-Public Use
  Company Number: US-BAYER-2011-037107

PATIENT
  Age: 26 Year
  Sex: Female

DRUGS (2)
  1. YAZ [Suspect]
     Indication: ORAL CONTRACEPTION
     Dosage: UNK
     Dates: start: 20070101, end: 20100101
  2. LASIX [Concomitant]
     Indication: PULMONARY OEDEMA
     Dosage: 40 MG, QD
     Dates: start: 20100324, end: 20100327

REACTIONS (1)
  - PULMONARY EMBOLISM [None]
